FAERS Safety Report 4350234-X (Version None)
Quarter: 2004Q1

REPORT INFORMATION
  Report Type: 
  Country: None (occurrence: None)
  Receive Date: 20040329
  Receipt Date: 20040121
  Transmission Date: 20041129
  Serious: No
  Sender: FDA-Public Use
  Company Number: USA040157129

PATIENT
  Age: 8 Year
  Sex: Male
  Weight: 34 kg

DRUGS (1)
  1. STRATTERA [Suspect]
     Indication: DISTURBANCE IN ATTENTION
     Dosage: 25 MG/DAY
     Dates: start: 20040104

REACTIONS (1)
  - DISTURBANCE IN ATTENTION [None]
